FAERS Safety Report 12105670 (Version 1)
Quarter: 2016Q1

REPORT INFORMATION
  Report Type: Report from Study
  Country: US (occurrence: US)
  Receive Date: 20160223
  Receipt Date: 20160223
  Transmission Date: 20160526
  Serious: Yes (Hospitalization)
  Sender: FDA-Public Use
  Company Number: US-BIOGEN-2016BI00192724

PATIENT
  Sex: Female

DRUGS (1)
  1. TECFIDERA [Suspect]
     Active Substance: DIMETHYL FUMARATE
     Indication: MULTIPLE SCLEROSIS
     Route: 048
     Dates: start: 20150629

REACTIONS (6)
  - Balance disorder [Unknown]
  - Pain in extremity [Unknown]
  - Memory impairment [Unknown]
  - Tremor [Unknown]
  - Muscular weakness [Unknown]
  - Anxiety [Recovered/Resolved]
